FAERS Safety Report 24756179 (Version 1)
Quarter: 2024Q4

REPORT INFORMATION
  Report Type: Spontaneous
  Country: IT (occurrence: IT)
  Receive Date: 20241219
  Receipt Date: 20241219
  Transmission Date: 20250115
  Serious: Yes (Other)
  Sender: AUROBINDO
  Company Number: IT-MINISAL02-1014478

PATIENT
  Age: 42 Year
  Sex: Female
  Weight: 90 kg

DRUGS (13)
  1. FULVESTRANT [Suspect]
     Active Substance: FULVESTRANT
     Indication: Breast cancer
     Dosage: FULVESTRANT 250 MG 1 VIAL IN RIGHT BUTTOCK AND 1 VIAL IN LEFT BUTTOCK ON DAY 1, 14 AND 28
     Route: 030
  2. Daflon [Concomitant]
     Indication: Product used for unknown indication
     Dosage: 500 MILLIGRAM
     Route: 048
  3. Decapeptyl [Concomitant]
     Indication: Breast cancer
     Dosage: 3.75 MILLIGRAM, EVERY 4 WEEK (~3,75 MG/2 ML  )
     Route: 030
     Dates: start: 201701, end: 202406
  4. Decapeptyl [Concomitant]
     Dosage: 11.25 MILLIGRAM, EVERY 4 WEEKS (11,25 MG/2 ML  )
     Route: 030
     Dates: start: 202407
  5. TAMOXIFEN [Concomitant]
     Active Substance: TAMOXIFEN
     Indication: Product used for unknown indication
     Dosage: UNK
     Route: 048
     Dates: start: 201707
  6. AXELTA [Concomitant]
     Indication: Breast cancer
     Dosage: 25 MILLIGRAM, ONCE A DAY
     Route: 048
     Dates: start: 202105
  7. LASIX [Concomitant]
     Active Substance: FUROSEMIDE
     Indication: Blood pressure increased
     Dosage: 25 MILLIGRAM, ONCE A DAY
     Route: 048
     Dates: start: 20241018, end: 20241018
  8. TACHIPIRINA [Concomitant]
     Active Substance: ACETAMINOPHEN
     Indication: Pyrexia
     Dosage: UNK
     Route: 048
     Dates: start: 20241018
  9. Tad [Concomitant]
     Indication: Product used for unknown indication
     Dosage: TAD VIAL, 1 FL.
     Route: 030
     Dates: start: 20241019
  10. ABEMACICLIB [Concomitant]
     Active Substance: ABEMACICLIB
     Indication: Product used for unknown indication
     Dosage: 100 MILLIGRAM
     Route: 048
  11. ABEMACICLIB [Concomitant]
     Active Substance: ABEMACICLIB
     Dosage: 150 MILLIGRAM, TWO TIMES A DAY
     Route: 048
     Dates: start: 202308, end: 202310
  12. ELIQUIS [Concomitant]
     Active Substance: APIXABAN
     Indication: Product used for unknown indication
     Dosage: 5 MILLIGRAM
     Route: 048
  13. ELIQUIS [Concomitant]
     Active Substance: APIXABAN
     Dosage: 2.5 MILLIGRAM, TWO TIMES A DAY
     Route: 048
     Dates: start: 202309

REACTIONS (8)
  - Syncope [Recovered/Resolved]
  - Loss of consciousness [Recovered/Resolved]
  - Oropharyngeal discomfort [Recovered/Resolved]
  - Nausea [Recovered/Resolved]
  - Feeling cold [Recovered/Resolved]
  - Flushing [Recovered/Resolved]
  - Blood pressure increased [Recovered/Resolved]
  - Pyrexia [Recovered/Resolved]

NARRATIVE: CASE EVENT DATE: 20241018
